FAERS Safety Report 13630649 (Version 1)
Quarter: 2017Q2

REPORT INFORMATION
  Report Type: Spontaneous
  Country: US (occurrence: US)
  Receive Date: 20170531
  Receipt Date: 20170531
  Transmission Date: 20170830
  Serious: No
  Sender: FDA-Public Use
  Company Number: US-ASTELLAS-1317565

PATIENT
  Sex: Male

DRUGS (18)
  1. VITAMIN B12 [Concomitant]
     Active Substance: CYANOCOBALAMIN
  2. PRILOSEC [Concomitant]
     Active Substance: OMEPRAZOLE MAGNESIUM
  3. OMEGA 3 [Concomitant]
     Active Substance: OMEGA-3 FATTY ACIDS
  4. FOLIC ACID. [Concomitant]
     Active Substance: FOLIC ACID
  5. DESONIDE CREAM [Concomitant]
  6. BYSTOLIC [Concomitant]
     Active Substance: NEBIVOLOL HYDROCHLORIDE
  7. ZOFRAN [Concomitant]
     Active Substance: ONDANSETRON HYDROCHLORIDE
  8. ASPIR 81 [Concomitant]
  9. TARCEVA [Suspect]
     Active Substance: ERLOTINIB HYDROCHLORIDE
     Indication: LUNG NEOPLASM MALIGNANT
     Route: 048
     Dates: start: 20131122
  10. TAMSULOSIN HCL [Concomitant]
     Active Substance: TAMSULOSIN
  11. DEXAMETHASONE. [Concomitant]
     Active Substance: DEXAMETHASONE
  12. ATORVASTATIN CALCIUM. [Concomitant]
     Active Substance: ATORVASTATIN CALCIUM
  13. ALEVE [Concomitant]
     Active Substance: NAPROXEN SODIUM
  14. ALLOPURINOL. [Concomitant]
     Active Substance: ALLOPURINOL
     Route: 065
  15. PROMETHAZINE HCL [Concomitant]
     Active Substance: PROMETHAZINE HYDROCHLORIDE
  16. NIACIN. [Concomitant]
     Active Substance: NIACIN
  17. MAGNESIUM ASPARTATE [Concomitant]
     Active Substance: MAGNESIUM ASPARTATE
  18. MIRALAX [Concomitant]
     Active Substance: POLYETHYLENE GLYCOL 3350

REACTIONS (1)
  - Rash [Unknown]
